FAERS Safety Report 19434375 (Version 3)
Quarter: 2022Q1

REPORT INFORMATION
  Report Type: Spontaneous
  Country: PL (occurrence: PL)
  Receive Date: 20210618
  Receipt Date: 20220128
  Transmission Date: 20220423
  Serious: Yes (Hospitalization, Other)
  Sender: FDA-Public Use
  Company Number: PL-EMA-DD-20210601-BANAVALLI_M-133850

PATIENT
  Age: 49 Year
  Sex: Male

DRUGS (27)
  1. CARVEDILOL [Suspect]
     Active Substance: CARVEDILOL
     Indication: Product used for unknown indication
     Dosage: 50 MILLIGRAM DAILY; BID:THERAPY START DATE :THERAPY END DATE:ASKU
     Route: 065
  2. CARVEDILOL [Suspect]
     Active Substance: CARVEDILOL
     Dosage: 50 MILLIGRAM DAILY; 25 MG, BID (2X1 TABLETS/MORNING AND EVENING), THERAPY START DATE, THERAPY END DA
     Route: 065
  3. EZETIMIBE [Suspect]
     Active Substance: EZETIMIBE
     Indication: Product used for unknown indication
     Dosage: 10 MILLIGRAM DAILY;  AT NIGHT:THERAPY START DATE:THERAPY END DATE :ASKU
  4. TRIMETAZIDINE [Suspect]
     Active Substance: TRIMETAZIDINE
     Indication: Product used for unknown indication
     Dosage: 4 DOSAGE FORMS DAILY; BIDTHERAPY START DATE :THERAPY END DATE :ASKU, TRIMETAZIDINE HYDROCHLORIDE
     Route: 065
  5. TRIMETAZIDINE [Suspect]
     Active Substance: TRIMETAZIDINE
     Dosage: 70 MILLIGRAM DAILY; 35 MG (2X 1 TABLET/MORNING AND EVENING), THERAPY START AND END DATE: ASKU
     Route: 065
  6. RAMIPRIL [Suspect]
     Active Substance: RAMIPRIL
     Indication: Product used for unknown indication
     Dosage: 5 MILLIGRAM DAILY; IN THE EVENING:THERAPY START DATE:THERAPY END DATE :ASKU
     Route: 065
  7. RAMIPRIL [Suspect]
     Active Substance: RAMIPRIL
     Dosage: 1 DOSAGE FORMS DAILY; THERAPY START AND END DATE: ASKU
     Route: 065
  8. BISOPROLOL [Suspect]
     Active Substance: BISOPROLOL
     Indication: Product used for unknown indication
     Dosage: 5 MILLIGRAM DAILY; QDTHERAPY START DATE:THERAPY END DATE :ASKU
  9. ASPIRIN [Suspect]
     Active Substance: ASPIRIN
     Indication: Product used for unknown indication
     Dosage: 75 MILLIGRAM DAILY; 75 MG (1 TABLETS IN THE EVENING) THERAPY START DATE:THERAPY START DATE:ASKU
  10. ROSUVASTATIN [Suspect]
     Active Substance: ROSUVASTATIN
     Indication: Product used for unknown indication
     Dosage: 1 DF, QD THERAPY START DATE :THERAPY END DATE :ASKU:UNIT DOSE:30MILLIGRAM
  11. EPLERENONE [Suspect]
     Active Substance: EPLERENONE
     Indication: Product used for unknown indication
     Dosage: 0.5 DF (25 MG(1 TABLET/HALF):THERAPY START DATE :THERAPY END DATE :ASKU:UNIT DOSE:25MILLIGRAM
     Route: 065
  12. EPLERENONE [Suspect]
     Active Substance: EPLERENONE
     Dosage: 0.5 DF (25 MG(1 TABLET/HALF)), THERAPY START DATE :THERAPY END DATE:ASKU
     Route: 065
  13. ENTRESTO [Suspect]
     Active Substance: SACUBITRIL\VALSARTAN
     Indication: Product used for unknown indication
     Dosage: 2 DOSAGE FORMS DAILY; 49/51 MG 2 X DAY THERAPY END DATE :ASKU
     Route: 065
     Dates: start: 20190910
  14. ENTRESTO [Suspect]
     Active Substance: SACUBITRIL\VALSARTAN
     Dosage: 2X97/103MG
     Route: 065
  15. FENOFIBRATE [Suspect]
     Active Substance: FENOFIBRATE
     Indication: Product used for unknown indication
     Dosage: 25 MILLIGRAM DAILY; 25 MG, DAILY THERAPY START DATE:THERAPY END DATE :ASKU
     Route: 065
  16. FENOFIBRATE [Suspect]
     Active Substance: FENOFIBRATE
     Dosage: 125 MILLIGRAM DAILY; 125 MG (1X 1 TABLET/MORNING)
     Route: 065
  17. OMEGA-3 FATTY ACIDS [Suspect]
     Active Substance: OMEGA-3 FATTY ACIDS
     Indication: Product used for unknown indication
     Dosage: UNK (DOSE TEXT: 2 TABLET)THERAPY START DATE :THERAPY END DATE:ASKU
  18. OMEGA-3 FATTY ACIDS [Suspect]
     Active Substance: OMEGA-3 FATTY ACIDS
     Indication: Product used for unknown indication
     Dosage: 75 MG
     Route: 065
  19. OMEGA-3 FATTY ACIDS [Suspect]
     Active Substance: OMEGA-3 FATTY ACIDS
     Dosage: 25 MG QAM / 125 MG QAM
     Route: 065
  20. OMEGA-3 FATTY ACIDS [Suspect]
     Active Substance: OMEGA-3 FATTY ACIDS
     Dosage: 10 MG
     Route: 065
  21. OMEGA-3 FATTY ACIDS [Suspect]
     Active Substance: OMEGA-3 FATTY ACIDS
     Dosage: (4): 2 TABLET/ (12): 2 TABLET
     Route: 065
  22. OMEGA-3 FATTY ACIDS [Suspect]
     Active Substance: OMEGA-3 FATTY ACIDS
     Dosage: 2 TABLET/MORNING AND EVENING
     Route: 065
  23. OMEGA-3 FATTY ACIDS [Suspect]
     Active Substance: OMEGA-3 FATTY ACIDS
     Dosage: 25 MG(1 TABLET/HALF)
     Route: 065
  24. OMEGA-3 FATTY ACIDS [Suspect]
     Active Substance: OMEGA-3 FATTY ACIDS
     Dosage: 25 MG
     Route: 065
  25. OMEGA-3 FATTY ACIDS [Suspect]
     Active Substance: OMEGA-3 FATTY ACIDS
     Dosage: 5 MILLIGRAM DAILY; 5 MILLIGRAMS IN THE EVENING/ 5MG DAILY
     Route: 065
  26. OMEGA-3 FATTY ACIDS [Suspect]
     Active Substance: OMEGA-3 FATTY ACIDS
     Dosage: 1 DF
     Route: 065
  27. OMEGA-3 FATTY ACIDS [Suspect]
     Active Substance: OMEGA-3 FATTY ACIDS
     Dosage: 2 DOSAGE FORMS DAILY; 49/51 MG TWO TIMES A DAY
     Route: 065

REACTIONS (6)
  - Electrocardiogram abnormal [Unknown]
  - General physical health deterioration [Unknown]
  - Dyspnoea [Unknown]
  - Rales [Unknown]
  - Fatigue [Unknown]
  - Rales [Unknown]
